FAERS Safety Report 25212504 (Version 1)
Quarter: 2025Q2

REPORT INFORMATION
  Report Type: Spontaneous
  Country: US (occurrence: US)
  Receive Date: 20250418
  Receipt Date: 20250418
  Transmission Date: 20250716
  Serious: No
  Sender: SANOFI AVENTIS
  Company Number: US-SA-2025SA111170

PATIENT
  Age: 70 Year
  Sex: Female

DRUGS (8)
  1. DUPIXENT [Suspect]
     Active Substance: DUPILUMAB
     Indication: Dermatitis atopic
     Dosage: 300 MG, QOW
     Route: 058
     Dates: start: 20241101
  2. AMBIEN [Concomitant]
     Active Substance: ZOLPIDEM TARTRATE
  3. EZETIMIBE [Concomitant]
     Active Substance: EZETIMIBE
  4. FERROUS SULFATE [Concomitant]
     Active Substance: FERROUS SULFATE
  5. LEVOTHYROXINE [Concomitant]
     Active Substance: LEVOTHYROXINE
  6. LISINOPRIL [Concomitant]
     Active Substance: LISINOPRIL
  7. METHOCARBAMOL [Concomitant]
     Active Substance: METHOCARBAMOL
  8. METOPROLOL [Concomitant]
     Active Substance: METOPROLOL

REACTIONS (1)
  - Dizziness [Not Recovered/Not Resolved]
